FAERS Safety Report 10704926 (Version 2)
Quarter: 2015Q1

REPORT INFORMATION
  Report Type: Report from Study
  Country: DE (occurrence: DE)
  Receive Date: 20150112
  Receipt Date: 20150112
  Transmission Date: 20150721
  Serious: Yes (Death, Hospitalization)
  Sender: FDA-Public Use
  Company Number: DE-CELGENE-062-21660-12040193

PATIENT
  Age: 76 Year
  Sex: Female
  Weight: 65 kg

DRUGS (3)
  1. ABRAXANE [Suspect]
     Active Substance: PACLITAXEL
     Indication: BREAST CANCER
     Route: 041
     Dates: start: 20120314, end: 20120328
  2. CAPECITABINE. [Suspect]
     Active Substance: CAPECITABINE
     Indication: BREAST CANCER
     Route: 048
     Dates: start: 20120314, end: 20120327
  3. NEULASTA [Concomitant]
     Active Substance: PEGFILGRASTIM
     Indication: PRODUCT USED FOR UNKNOWN INDICATION
     Route: 065
     Dates: start: 20120329, end: 20120329

REACTIONS (4)
  - Sepsis [Fatal]
  - Febrile neutropenia [Recovered/Resolved]
  - Multi-organ failure [Fatal]
  - Diarrhoea [Not Recovered/Not Resolved]

NARRATIVE: CASE EVENT DATE: 20120331
